FAERS Safety Report 4284348-X (Version None)
Quarter: 2004Q1

REPORT INFORMATION
  Report Type: 
  Country: None (occurrence: None)
  Receive Date: 20040130
  Receipt Date: 20040130
  Transmission Date: 20041129
  Serious: Yes (Hospitalization)
  Sender: FDA-Public Use
  Company Number: None

PATIENT
  Age: 4 Year
  Sex: Male

DRUGS (1)
  1. EMLA [Suspect]
     Indication: MOLLUSCUM CONTAGIOSUM
     Dosage: TOPICALLY 1.75 TUBES 30 GRAM
     Route: 061
     Dates: start: 20020501

REACTIONS (1)
  - GRAND MAL CONVULSION [None]
